FAERS Safety Report 7294424-5 (Version None)
Quarter: 2011Q1

REPORT INFORMATION
  Report Type: 
  Country: None (occurrence: None)
  Receive Date: 20110215
  Receipt Date: 20110209
  Transmission Date: 20110831
  Serious: Yes (Death, Life-Threatening)
  Sender: FDA-Public Use
  Company Number: CN-BRISTOL-MYERS SQUIBB COMPANY-15070717

PATIENT
  Age: 52 Year
  Sex: Male
  Weight: 43 kg

DRUGS (3)
  1. FLUOROURACIL [Suspect]
     Indication: HEAD AND NECK CANCER
     Dosage: RECENT INF:23MAR10 (2ND) CONTINUOUS INF OVER D1 TO D15 DISCONTINUED ON 16APR2010
     Route: 042
     Dates: start: 20100302, end: 20100416
  2. CETUXIMAB [Suspect]
     Indication: HEAD AND NECK CANCER
     Dosage: CETUXIMAB 5MG/ML RECENT INF:6APR10(6TH),16MAR2010 DISCONT ON 16APR10
     Route: 042
     Dates: start: 20100302, end: 20100416
  3. CISPLATIN [Suspect]
     Indication: HEAD AND NECK CANCER
     Dosage: RECENT INF:23MAR10(6TH) DISCONT ON 16APR10
     Route: 042
     Dates: start: 20100302, end: 20100416

REACTIONS (2)
  - RESPIRATORY ALKALOSIS [None]
  - MICROCYTIC ANAEMIA [None]
